FAERS Safety Report 10081430 (Version 3)
Quarter: 2014Q2

REPORT INFORMATION
  Report Type: Spontaneous
  Country: CN (occurrence: CN)
  Receive Date: 20140416
  Receipt Date: 20140528
  Transmission Date: 20141212
  Serious: Yes (Hospitalization)
  Sender: FDA-Public Use
  Company Number: CN-SA-2014SA041650

PATIENT
  Age: 85 Year
  Sex: Male
  Weight: 60 kg

DRUGS (1)
  1. COAPROVEL [Suspect]
     Indication: HYPERTENSION
     Route: 048
     Dates: start: 20131215, end: 20140228

REACTIONS (4)
  - Memory impairment [Recovering/Resolving]
  - Somnolence [Recovered/Resolved]
  - Electrolyte imbalance [Recovered/Resolved]
  - Decreased appetite [Recovered/Resolved]
